FAERS Safety Report 9724663 (Version 1)
Quarter: 2013Q4

REPORT INFORMATION
  Report Type: Spontaneous
  Country: FR (occurrence: FR)
  Receive Date: 20131202
  Receipt Date: 20131202
  Transmission Date: 20140711
  Serious: Yes (Hospitalization)
  Sender: FDA-Public Use
  Company Number: FR-ASTRAZENECA-2013SE85405

PATIENT
  Age: 84 Year
  Sex: Female

DRUGS (4)
  1. INEXIUM [Suspect]
     Route: 048
     Dates: start: 20130319, end: 20130325
  2. KARDEGIC [Suspect]
     Route: 048
     Dates: start: 20130319, end: 20130325
  3. TIAPRIDAL [Suspect]
     Route: 048
     Dates: start: 20130320, end: 20130325
  4. SERESTA [Suspect]
     Route: 048
     Dates: start: 20130320, end: 20130325

REACTIONS (2)
  - Hepatocellular injury [Recovered/Resolved]
  - Cholestasis [Recovered/Resolved]
